FAERS Safety Report 8485579-5 (Version None)
Quarter: 2012Q2

REPORT INFORMATION
  Report Type: 
  Country: None (occurrence: None)
  Receive Date: 20120627
  Receipt Date: 20120627
  Transmission Date: 20120825
  Serious: No
  Sender: FDA-Public Use
  Company Number: None

PATIENT
  Age: 52 Year
  Sex: Female
  Weight: 63.5036 kg

DRUGS (1)
  1. FOSTEUM 27/20/200 PRIMUS PHARMACEUTICALS [Suspect]
     Indication: HOT FLUSH
     Dosage: ONE TWICE A DAY PO
     Route: 048
     Dates: start: 20120101, end: 20120622

REACTIONS (1)
  - BURSITIS [None]
